FAERS Safety Report 12677290 (Version 1)
Quarter: 2016Q3

REPORT INFORMATION
  Report Type: Spontaneous
  Country: CH (occurrence: CH)
  Receive Date: 20160823
  Receipt Date: 20160823
  Transmission Date: 20161109
  Serious: Yes (Hospitalization)
  Sender: FDA-Public Use
  Company Number: PHHY2016CH113928

PATIENT
  Age: 63 Year
  Sex: Male

DRUGS (16)
  1. NOXAFIL [Concomitant]
     Active Substance: POSACONAZOLE
     Indication: PRODUCT USED FOR UNKNOWN INDICATION
     Dosage: 100 MG, TID
     Route: 048
  2. TOREM [Concomitant]
     Active Substance: TORSEMIDE
     Indication: PRODUCT USED FOR UNKNOWN INDICATION
     Dosage: 1 DF, QD (DOSAGE BETWEEN 5-40MG , DEPENDING ON BLOOD PRESSURE)
     Route: 048
  3. ASPIRIN CARDIO [Concomitant]
     Active Substance: ASPIRIN
     Indication: PRODUCT USED FOR UNKNOWN INDICATION
     Dosage: 100 MG, QD
     Route: 048
     Dates: end: 20160725
  4. POLIDOCANOL [Concomitant]
     Active Substance: POLIDOCANOL
     Indication: PRODUCT USED FOR UNKNOWN INDICATION
     Dosage: 1 DF, BID
     Route: 061
  5. OMEGA 3 [Concomitant]
     Active Substance: OMEGA-3 FATTY ACIDS
     Indication: PRODUCT USED FOR UNKNOWN INDICATION
     Dosage: 1 DF, QD
     Route: 048
     Dates: end: 20160721
  6. ACLASTA [Suspect]
     Active Substance: ZOLEDRONIC ACID
     Indication: PRODUCT USED FOR UNKNOWN INDICATION
     Dosage: UNK
     Route: 041
     Dates: start: 20160720
  7. CONCOR [Concomitant]
     Active Substance: BISOPROLOL FUMARATE
     Dosage: 1.25 MG, QD
     Route: 048
  8. DUODART [Concomitant]
     Active Substance: DUTASTERIDE\TAMSULOSIN
     Indication: PRODUCT USED FOR UNKNOWN INDICATION
     Dosage: 1 DF, QD (1 DF: 0.5MG/0.4MG)
     Route: 048
  9. PANTOZOL [Concomitant]
     Active Substance: PANTOPRAZOLE SODIUM
     Indication: PRODUCT USED FOR UNKNOWN INDICATION
     Dosage: 40 MG, QD
     Route: 048
     Dates: end: 20160721
  10. ZESTRIL [Concomitant]
     Active Substance: LISINOPRIL
     Indication: PRODUCT USED FOR UNKNOWN INDICATION
     Dosage: 5 MG, QD
     Route: 048
  11. CONCOR [Concomitant]
     Active Substance: BISOPROLOL FUMARATE
     Indication: PRODUCT USED FOR UNKNOWN INDICATION
     Dosage: 2.5 MG, QD
     Route: 048
  12. PREDNISON [Concomitant]
     Active Substance: PREDNISONE
     Indication: PRODUCT USED FOR UNKNOWN INDICATION
     Dosage: 7.5 MG, QD
     Route: 048
     Dates: end: 20160725
  13. MIRTAZAPIN [Concomitant]
     Active Substance: MIRTAZAPINE
     Indication: PRODUCT USED FOR UNKNOWN INDICATION
     Dosage: 15 MG, QD
     Route: 048
     Dates: end: 20160721
  14. ZESTRIL [Concomitant]
     Active Substance: LISINOPRIL
     Dosage: 1.25 MG, QD
     Route: 048
     Dates: start: 20160725
  15. REDORMIN//REMIFENTANIL HYDROCHLORIDE [Concomitant]
     Indication: PRODUCT USED FOR UNKNOWN INDICATION
     Dosage: 1 DF, QD
     Route: 048
  16. CALCIMAGON D3 [Concomitant]
     Active Substance: CALCIUM\CHOLECALCIFEROL
     Indication: PRODUCT USED FOR UNKNOWN INDICATION
     Dosage: 1 DF, QD (1 DF = 800/160MG)

REACTIONS (1)
  - Systemic inflammatory response syndrome [Recovered/Resolved]

NARRATIVE: CASE EVENT DATE: 20160721
